FAERS Safety Report 10385719 (Version 1)
Quarter: 2014Q3

REPORT INFORMATION
  Report Type: Spontaneous
  Country: BR (occurrence: BR)
  Receive Date: 20140814
  Receipt Date: 20140814
  Transmission Date: 20150326
  Serious: Yes (Other)
  Sender: FDA-Public Use
  Company Number: BR-PFIZER INC-2014223988

PATIENT
  Age: 59 Year
  Sex: Male
  Weight: 77 kg

DRUGS (1)
  1. LIPITOR [Suspect]
     Active Substance: ATORVASTATIN CALCIUM
     Indication: BLOOD CHOLESTEROL INCREASED
     Dosage: 2 TABLETS OF 20MG (40 MG), DAILY
     Route: 048
     Dates: start: 2012, end: 201403

REACTIONS (4)
  - Arthralgia [Unknown]
  - Bone pain [Unknown]
  - Angiopathy [Unknown]
  - Peripheral swelling [Unknown]
